FAERS Safety Report 24330056 (Version 1)
Quarter: 2024Q3

REPORT INFORMATION
  Report Type: Report from Study
  Country: EG (occurrence: EG)
  Receive Date: 20240917
  Receipt Date: 20240917
  Transmission Date: 20241016
  Serious: No
  Sender: SANDOZ
  Company Number: EG-SANDOZ-SDZ2024EG080763

PATIENT
  Sex: Male

DRUGS (1)
  1. OMNITROPE [Suspect]
     Active Substance: SOMATROPIN
     Indication: Product used for unknown indication
     Dosage: 10 MG
     Route: 058
     Dates: start: 202205

REACTIONS (1)
  - Expired device used [Unknown]
